FAERS Safety Report 14454347 (Version 1)
Quarter: 2018Q1

REPORT INFORMATION
  Report Type: Spontaneous
  Country: US (occurrence: US)
  Receive Date: 20180129
  Receipt Date: 20180129
  Transmission Date: 20180509
  Serious: No
  Sender: FDA-Public Use
  Company Number: US-PERRIGO-17US026069

PATIENT
  Age: 70 Year
  Sex: Female

DRUGS (3)
  1. TRETINOIN. [Suspect]
     Active Substance: TRETINOIN
     Indication: SKIN DISCOLOURATION
     Dosage: UNKNOWN, UNKNOWN
     Route: 061
     Dates: start: 2017, end: 2017
  2. TRETINOIN. [Suspect]
     Active Substance: TRETINOIN
     Indication: SKIN WRINKLING
  3. SUNSCREEN [Suspect]
     Active Substance: HOMOSALATE\OCTINOXATE\OCTISALATE\OXYBENZONE\TITANIUM DIOXIDE
     Indication: PROPHYLAXIS
     Dosage: UNKNOWN, UNKNOWN
     Route: 061
     Dates: start: 2017, end: 2017

REACTIONS (5)
  - Application site pain [Recovered/Resolved]
  - Drug administered to patient of inappropriate age [Recovered/Resolved]
  - Expired product administered [Recovered/Resolved]
  - Application site irritation [Recovered/Resolved]
  - Off label use [Recovered/Resolved]

NARRATIVE: CASE EVENT DATE: 2017
